FAERS Safety Report 7815089-7 (Version None)
Quarter: 2011Q4

REPORT INFORMATION
  Report Type: 
  Country: None (occurrence: None)
  Receive Date: 20111014
  Receipt Date: 20111014
  Transmission Date: 20120403
  Serious: Yes (Life-Threatening)
  Sender: FDA-Public Use
  Company Number: None

PATIENT
  Age: 25 Year
  Sex: Female
  Weight: 74.842 kg

DRUGS (1)
  1. MEFLOQUINE HYDROCHLORIDE [Suspect]
     Indication: MALARIA PROPHYLAXIS
     Dosage: 25MG
     Dates: start: 20110630, end: 20110907

REACTIONS (7)
  - FATIGUE [None]
  - PYREXIA [None]
  - INSOMNIA [None]
  - RASH [None]
  - HEPATITIS [None]
  - DEPRESSION [None]
  - PERSONALITY CHANGE [None]
